FAERS Safety Report 5035070-3 (Version None)
Quarter: 2006Q2

REPORT INFORMATION
  Report Type: 
  Country: None (occurrence: None)
  Receive Date: 20060622
  Receipt Date: 20060622
  Transmission Date: 20061013
  Serious: No
  Sender: FDA-Public Use
  Company Number: None

PATIENT
  Sex: Female
  Weight: 55.7924 kg

DRUGS (1)
  1. VIVELLE-DOT [Suspect]
     Indication: MENOPAUSE
     Dosage: 0.0375 2X/WEEK SKIN
     Route: 003
     Dates: start: 20060401

REACTIONS (3)
  - ABDOMINAL DISTENSION [None]
  - PHARMACEUTICAL PRODUCT COMPLAINT [None]
  - SWELLING [None]
